FAERS Safety Report 19939482 (Version 1)
Quarter: 2021Q4

REPORT INFORMATION
  Report Type: Report from Study
  Country: AU (occurrence: AU)
  Receive Date: 20211011
  Receipt Date: 20211011
  Transmission Date: 20220303
  Serious: Yes (Other)
  Sender: FDA-Public Use
  Company Number: AU-NOVARTISPH-NVSC2021AU231764

PATIENT
  Age: 67 Year
  Sex: Male

DRUGS (1)
  1. COSENTYX [Suspect]
     Active Substance: SECUKINUMAB
     Indication: Ankylosing spondylitis
     Dosage: UNK UNK, QMO (ON 4 WEEKLY DOSAGE)
     Route: 058
     Dates: start: 20190311

REACTIONS (2)
  - Injury [Unknown]
  - Infected bunion [Unknown]

NARRATIVE: CASE EVENT DATE: 20210901
